FAERS Safety Report 24181993 (Version 4)
Quarter: 2024Q3

REPORT INFORMATION
  Report Type: Spontaneous
  Country: DE (occurrence: DE)
  Receive Date: 20240807
  Receipt Date: 20240916
  Transmission Date: 20241017
  Serious: Yes (Hospitalization, Other)
  Sender: AMICUS THERAPEUTICS
  Company Number: DE-AMICUS THERAPEUTICS, INC.-AMI_3275

PATIENT
  Sex: Male
  Weight: 118.2 kg

DRUGS (4)
  1. POMBILITI [Suspect]
     Active Substance: CIPAGLUCOSIDASE ALFA-ATGA
     Indication: Glycogen storage disease type II
     Dosage: 22 DOSAGE FORM (VIALS), Q2WK
     Route: 042
     Dates: start: 20240723, end: 20240723
  2. POMBILITI [Suspect]
     Active Substance: CIPAGLUCOSIDASE ALFA-ATGA
     Dosage: 22 DOSAGE FORM (VIALS), Q2WK
     Route: 042
     Dates: start: 20240809
  3. OPFOLDA [Suspect]
     Active Substance: MIGLUSTAT
     Indication: Glycogen storage disease type II
     Dosage: 4 DOSAGE FORM, Q2WK (1 HOUR BEFORE INFUSION) (CAPSULES)
     Route: 048
     Dates: start: 20240723, end: 20240723
  4. OPFOLDA [Suspect]
     Active Substance: MIGLUSTAT
     Dosage: 4 DOSAGE FORM, Q2WK (1 HOUR BEFORE INFUSION) (CAPSULES)
     Route: 048
     Dates: start: 20240809

REACTIONS (4)
  - Coronavirus test positive [Recovering/Resolving]
  - Pneumonia [Recovering/Resolving]
  - Hypotension [Recovering/Resolving]
  - Abdominal discomfort [Not Recovered/Not Resolved]

NARRATIVE: CASE EVENT DATE: 20240101
